FAERS Safety Report 5912747-6 (Version None)
Quarter: 2008Q4

REPORT INFORMATION
  Report Type: 
  Country: None (occurrence: None)
  Receive Date: 20081006
  Receipt Date: 20080924
  Transmission Date: 20090506
  Serious: Yes (Other)
  Sender: FDA-Public Use
  Company Number: 2008EN000144

PATIENT
  Age: 63 Year
  Sex: Male

DRUGS (9)
  1. ABELCET [Suspect]
     Indication: SEPSIS
     Dosage: 400 MG X1 IV
     Route: 042
     Dates: start: 20080823, end: 20080823
  2. OMEPRAZOLE [Concomitant]
  3. DOBUTAMINE HCL [Concomitant]
  4. HYDROCHLORIDE [Concomitant]
  5. FUROSEMIDE [Concomitant]
  6. ENOXAPARIN SODIUM [Concomitant]
  7. ATORVASTATIN CALCIUM [Concomitant]
  8. LINEZOLID [Concomitant]
  9. MEROPENEM [Concomitant]

REACTIONS (3)
  - HYPERTENSION [None]
  - TACHYCARDIA [None]
  - TACHYPNOEA [None]
